FAERS Safety Report 9830171 (Version 1)
Quarter: 2014Q1

REPORT INFORMATION
  Report Type: Spontaneous
  Country: US (occurrence: US)
  Receive Date: 20140120
  Receipt Date: 20140120
  Transmission Date: 20141002
  Serious: No
  Sender: FDA-Public Use
  Company Number: US-009507513-1401USA002380

PATIENT
  Age: 20 Year
  Sex: Female

DRUGS (10)
  1. RALTEGRAVIR POTASSIUM [Suspect]
     Dosage: TOTAL DAILY DOSE: 800 (UNITS NOT REPORTED, FREQUENCY UNKNOWN
     Route: 048
  2. RITONAVIR [Suspect]
     Dosage: TOTAL DAILY DOSE: 200 (UNIT AND FREQUENCY NOT PROVIDED)
     Route: 048
  3. ZIDOVUDINE [Suspect]
     Dosage: TOTAL DAILY DOSE: 2 (UNIT AND FREQUENCY NOT PROVIDED)
     Route: 042
  4. ZIDOVUDINE [Suspect]
     Dosage: TOTAL DAILY DOSE: 2 (UNIT AND FREQUENCY NOT PROVIDED)
     Route: 042
  5. LAMIVUDINE (+) ZIDOVUDINE [Suspect]
     Dosage: TOTAL DAILY DOSE: 2 (UNIT AND FREQUENCY NOT PROVIDED)
     Route: 048
  6. LOPINAVIR (+) RITONAVIR [Suspect]
     Dosage: TOTAL DAILY DOSE: 3 (UNIT AND FREQUENCY NOT PROVIDED)
     Route: 048
  7. DARUNAVIR [Suspect]
     Dosage: TOTAL DAILY DOSE: 800 (UNITS AND FREQUENCY NOT PROVIDED)
     Route: 048
  8. EMTRICITABINE (+) TENOFOVIR DISOPROXIL FUMARATE [Suspect]
     Dosage: TOTAL DAILY DOSE: 1 (UNIT AND FREQUENCY NOT PROVIDED)
     Route: 048
  9. DARUNAVIR [Suspect]
     Dosage: TOTAL DAILY DOSE: 1200 (UNITS AND FREQUENCY NOT PROVIDED)
     Route: 048
  10. RITONAVIR [Suspect]
     Dosage: TOTAL DAILY DOSE: 100 (UNIT AND FREQUENCY NOT PROVIDED)
     Route: 048

REACTIONS (1)
  - Exposure during pregnancy [Unknown]
